FAERS Safety Report 25575889 (Version 2)
Quarter: 2025Q4

REPORT INFORMATION
  Report Type: Report from Study
  Country: ZA (occurrence: ZA)
  Receive Date: 20250718
  Receipt Date: 20251222
  Transmission Date: 20260118
  Serious: Yes (Other)
  Sender: AMGEN
  Company Number: ZA-PFIZER INC-2018086394

PATIENT
  Age: 52 Year
  Sex: Male

DRUGS (4)
  1. ENBREL [Suspect]
     Active Substance: ETANERCEPT
     Indication: Ankylosing spondylitis
     Dosage: 25 MG
     Route: 065
     Dates: start: 20090424
  2. MELOXICAM [Concomitant]
     Active Substance: MELOXICAM
     Indication: Product used for unknown indication
     Dosage: 15 MG, DAILY
     Route: 065
     Dates: start: 20041207
  3. METHOTREXATE [Concomitant]
     Active Substance: METHOTREXATE
     Indication: Product used for unknown indication
     Dosage: 10 MG, WEEKLY
     Route: 065
     Dates: start: 20041207
  4. SULFASALAZINE [Concomitant]
     Active Substance: SULFASALAZINE
     Indication: Product used for unknown indication
     Dosage: 1000 MG, 2X/DAY
     Route: 065
     Dates: start: 20041207

REACTIONS (2)
  - Ankylosing spondylitis [Unknown]
  - Condition aggravated [Unknown]
